FAERS Safety Report 13105999 (Version 2)
Quarter: 2017Q2

REPORT INFORMATION
  Report Type: Spontaneous
  Country: US (occurrence: US)
  Receive Date: 20170111
  Receipt Date: 20170529
  Transmission Date: 20170830
  Serious: No
  Sender: FDA-Public Use
  Company Number: US-009507513-1701USA003693

PATIENT
  Age: 26 Year
  Sex: Female
  Weight: 65.31 kg

DRUGS (1)
  1. NEXPLANON [Suspect]
     Active Substance: ETONOGESTREL
     Dosage: 1 ROD/3 YEARS, LEFT ARM
     Route: 059
     Dates: start: 20160701, end: 20170113

REACTIONS (3)
  - Device kink [Recovered/Resolved]
  - No adverse event [Unknown]
  - Device expulsion [Recovered/Resolved]

NARRATIVE: CASE EVENT DATE: 20170112
